FAERS Safety Report 13115416 (Version 5)
Quarter: 2017Q2

REPORT INFORMATION
  Report Type: Report from Study
  Country: US (occurrence: US)
  Receive Date: 20170113
  Receipt Date: 20170508
  Transmission Date: 20170830
  Serious: Yes (Other)
  Sender: FDA-Public Use
  Company Number: US-ACTELION-A-NJ2016-145184

PATIENT
  Age: 60 Year
  Sex: Female
  Weight: 111.11 kg

DRUGS (7)
  1. OPSUMIT [Suspect]
     Active Substance: MACITENTAN
     Indication: PORTOPULMONARY HYPERTENSION
     Dosage: 10 MG, QD
     Route: 048
     Dates: start: 20151026
  2. LASIX [Concomitant]
     Active Substance: FUROSEMIDE
  3. OMEPRAZOLE. [Concomitant]
     Active Substance: OMEPRAZOLE
  4. SILDENAFIL. [Concomitant]
     Active Substance: SILDENAFIL
  5. ATENOLOL. [Concomitant]
     Active Substance: ATENOLOL
  6. UPTRAVI [Concomitant]
     Active Substance: SELEXIPAG
  7. DOXEPIN [Concomitant]
     Active Substance: DOXEPIN

REACTIONS (23)
  - Tremor [Unknown]
  - Contusion [Unknown]
  - Pruritus [Unknown]
  - Palpitations [Unknown]
  - Jaundice [Not Recovered/Not Resolved]
  - Myalgia [Unknown]
  - Oxygen saturation decreased [Unknown]
  - Nausea [Unknown]
  - Arthralgia [Unknown]
  - Ammonia abnormal [Unknown]
  - Fatigue [Unknown]
  - Telangiectasia [Not Recovered/Not Resolved]
  - Dyspnoea exertional [Unknown]
  - Asterixis [Not Recovered/Not Resolved]
  - Back pain [Unknown]
  - Feeling jittery [Unknown]
  - Condition aggravated [Unknown]
  - Skin discomfort [Unknown]
  - Vomiting [Unknown]
  - Eczema [Unknown]
  - Non-alcoholic fatty liver [Not Recovered/Not Resolved]
  - Headache [Unknown]
  - Dyspnoea [Unknown]
